FAERS Safety Report 13915309 (Version 1)
Quarter: 2017Q3

REPORT INFORMATION
  Report Type: Spontaneous
  Country: US (occurrence: US)
  Receive Date: 20170828
  Receipt Date: 20170828
  Transmission Date: 20171127
  Serious: Yes (Disabling)
  Sender: FDA-Public Use
  Company Number: None

PATIENT
  Sex: Female
  Weight: 87 kg

DRUGS (9)
  1. DIPHENHYDRAMINE. [Concomitant]
     Active Substance: DIPHENHYDRAMINE
  2. ASPIRIN. [Concomitant]
     Active Substance: ASPIRIN
  3. OXYCODONE [Concomitant]
     Active Substance: OXYCODONE
  4. PHENYLEPHRINE HCL [Concomitant]
     Active Substance: PHENYLEPHRINE HYDROCHLORIDE
  5. METOPROLOL TARTRATE. [Concomitant]
     Active Substance: METOPROLOL TARTRATE
  6. ERGOCALCIFEROL (VIT D2) [Concomitant]
  7. EMBEDA [Suspect]
     Active Substance: MORPHINE SULFATE\NALTREXONE HYDROCHLORIDE
     Indication: PAIN
     Dosage: ?          QUANTITY:2 CAPSULE(S);?
     Route: 048
  8. EMBEDA [Concomitant]
     Active Substance: MORPHINE SULFATE\NALTREXONE HYDROCHLORIDE
  9. SIMVASTATIN. [Concomitant]
     Active Substance: SIMVASTATIN

REACTIONS (6)
  - Vomiting [None]
  - Diarrhoea [None]
  - Malaise [None]
  - Drug ineffective [None]
  - Feeling abnormal [None]
  - Weight decreased [None]

NARRATIVE: CASE EVENT DATE: 20170301
